FAERS Safety Report 8211607-8 (Version None)
Quarter: 2012Q1

REPORT INFORMATION
  Report Type: 
  Country: None (occurrence: None)
  Receive Date: 20120315
  Receipt Date: 20120308
  Transmission Date: 20120608
  Serious: Yes (Other)
  Sender: FDA-Public Use
  Company Number: US-BAYER-2012-023699

PATIENT
  Age: 70 Year
  Sex: Male
  Weight: 122 kg

DRUGS (2)
  1. FLOMAX [Concomitant]
  2. ALKA-SELTZER PLUS SEVERE SINUS CONGESTION + COUGH LIQUID GELS [Suspect]
     Indication: NASOPHARYNGITIS
     Dosage: 2 DF, ONCE
     Route: 048
     Dates: start: 20120220, end: 20120222

REACTIONS (1)
  - MICTURITION DISORDER [None]
